FAERS Safety Report 20212986 (Version 5)
Quarter: 2025Q1

REPORT INFORMATION
  Report Type: Spontaneous
  Country: US (occurrence: US)
  Receive Date: 20211221
  Receipt Date: 20250124
  Transmission Date: 20250409
  Serious: No
  Sender: SANOFI AVENTIS
  Company Number: US-SA-SAC20211213000957

PATIENT
  Age: 47 Year
  Sex: Male

DRUGS (32)
  1. DUPIXENT [Suspect]
     Active Substance: DUPILUMAB
     Indication: Asthma
     Route: 058
     Dates: start: 20211005, end: 20211005
  2. DUPIXENT [Suspect]
     Active Substance: DUPILUMAB
     Dosage: 300 MG, QOW, 300 MG/2ML
     Route: 058
     Dates: start: 202110
  3. BREO ELLIPTA [Concomitant]
     Active Substance: FLUTICASONE FUROATE\VILANTEROL TRIFENATATE
  4. EPINEPHRINE [Concomitant]
     Active Substance: EPINEPHRINE
  5. FLONASE [Concomitant]
     Active Substance: FLUTICASONE PROPIONATE
  6. INCRUSE ELLIPTA [Concomitant]
     Active Substance: UMECLIDINIUM BROMIDE
  7. IVERMECTIN [Concomitant]
     Active Substance: IVERMECTIN
  8. PREDNISONE [Concomitant]
     Active Substance: PREDNISONE
  9. PROAIR HFA [Concomitant]
     Active Substance: ALBUTEROL SULFATE
  10. TRELEGY ELLIPTA [Concomitant]
     Active Substance: FLUTICASONE FUROATE\UMECLIDINIUM BROMIDE\VILANTEROL TRIFENATATE
  11. XHANCE [Concomitant]
     Active Substance: FLUTICASONE PROPIONATE
  12. AZELASTINE [Concomitant]
     Active Substance: AZELASTINE
  13. FAMOTIDINE [Concomitant]
     Active Substance: FAMOTIDINE
  14. MONTELUKAST [Concomitant]
     Active Substance: MONTELUKAST
  15. .ALPHA.-TOCOPHEROL\FISH OIL [Concomitant]
     Active Substance: .ALPHA.-TOCOPHEROL\FISH OIL
  16. ENZYME NOS [Concomitant]
     Active Substance: UNSPECIFIED INGREDIENT
  17. ACETAMINOPHEN\OXYCODONE HYDROCHLORIDE [Concomitant]
     Active Substance: ACETAMINOPHEN\OXYCODONE HYDROCHLORIDE
  18. ASPIRIN [Concomitant]
     Active Substance: ASPIRIN
  19. ACETYLCYSTEINE [Concomitant]
     Active Substance: ACETYLCYSTEINE
  20. FLONASE ALLERGY RELIEF [Concomitant]
     Active Substance: FLUTICASONE PROPIONATE
  21. VERMECTIN [Concomitant]
  22. MONTELUKAST SODIUM [Concomitant]
     Active Substance: MONTELUKAST SODIUM
  23. PROAIR DIGIHALER [Concomitant]
     Active Substance: ALBUTEROL SULFATE
  24. TRELEGY ELLIPTA [Concomitant]
     Active Substance: FLUTICASONE FUROATE\UMECLIDINIUM BROMIDE\VILANTEROL TRIFENATATE
  25. OMEGA-3 FATTY ACIDS [Concomitant]
     Active Substance: OMEGA-3 FATTY ACIDS
  26. ENZYME DIGEST [Concomitant]
  27. IPRATROPIUM [Concomitant]
     Active Substance: IPRATROPIUM
  28. QVAR REDIHALER [Concomitant]
     Active Substance: BECLOMETHASONE DIPROPIONATE
  29. OMEGA 3 [SALMON OIL] [Concomitant]
  30. HERBALS [Concomitant]
     Active Substance: HERBALS
  31. DEXAMETHASONE\NEOMYCIN SULFATE\POLYMYXIN B SULFATE [Concomitant]
     Active Substance: DEXAMETHASONE\NEOMYCIN SULFATE\POLYMYXIN B SULFATE
  32. PNEUMOVAX 23 [Concomitant]
     Active Substance: PNEUMOCOCCAL VACCINE, POLYVALENT 23

REACTIONS (3)
  - Asthma [Not Recovered/Not Resolved]
  - Impaired quality of life [Not Recovered/Not Resolved]
  - Drug ineffective [Not Recovered/Not Resolved]

NARRATIVE: CASE EVENT DATE: 20211205
